FAERS Safety Report 6379101-7 (Version None)
Quarter: 2009Q3

REPORT INFORMATION
  Report Type: 
  Country: None (occurrence: None)
  Receive Date: 20090928
  Receipt Date: 20090917
  Transmission Date: 20100115
  Serious: Yes (Other)
  Sender: FDA-Public Use
  Company Number: US-BAYER-200933334NA

PATIENT
  Age: 27 Year
  Sex: Female

DRUGS (2)
  1. MIRENA [Suspect]
     Indication: CONTRACEPTION
     Dosage: CONTINUOUS
     Route: 015
  2. BLOOD PRESSURE MEDICATIONS [Concomitant]

REACTIONS (3)
  - CHEST PAIN [None]
  - LABILE BLOOD PRESSURE [None]
  - PALPITATIONS [None]
